FAERS Safety Report 14523436 (Version 5)
Quarter: 2018Q3

REPORT INFORMATION
  Report Type: Spontaneous
  Country: DE (occurrence: DE)
  Receive Date: 20180212
  Receipt Date: 20180828
  Transmission Date: 20181010
  Serious: Yes (Hospitalization, Other)
  Sender: FDA-Public Use
  Company Number: DE-ASTRAZENECA-2018SE14663

PATIENT
  Age: 75 Year
  Sex: Male
  Weight: 81 kg

DRUGS (30)
  1. CLEXANE [Suspect]
     Active Substance: ENOXAPARIN SODIUM
     Indication: VENOUS THROMBOSIS LIMB
     Route: 065
     Dates: start: 201507
  2. TOCILIZUMAB. [Suspect]
     Active Substance: TOCILIZUMAB
     Indication: VASCULITIS
     Dosage: 162 MG, UNK, EVERY 12 DAYS
     Route: 065
     Dates: start: 201506
  3. TOCILIZUMAB. [Suspect]
     Active Substance: TOCILIZUMAB
     Indication: RHEUMATOID ARTHRITIS
     Dosage: 162 MG, UNK, EVERY 12 DAYS
     Route: 065
     Dates: start: 201506
  4. TOCILIZUMAB. [Suspect]
     Active Substance: TOCILIZUMAB
     Indication: MYALGIA
     Dosage: 162 MG, BID
     Route: 065
     Dates: start: 201704, end: 20171025
  5. FRAXIPARIN [Suspect]
     Active Substance: NADROPARIN CALCIUM
     Indication: VENOUS THROMBOSIS LIMB
     Route: 065
     Dates: start: 201507
  6. TOCILIZUMAB. [Suspect]
     Active Substance: TOCILIZUMAB
     Indication: RHEUMATOID ARTHRITIS
     Dosage: 162 MG, UNK, EVERY 12 DAYS
     Route: 065
     Dates: start: 201404
  7. TOCILIZUMAB. [Suspect]
     Active Substance: TOCILIZUMAB
     Indication: MYALGIA
     Dosage: 162 MG, UNK, EVERY 12 DAYS
     Route: 065
     Dates: start: 201506
  8. TOCILIZUMAB. [Suspect]
     Active Substance: TOCILIZUMAB
     Indication: VASCULITIS
     Dosage: 162 MG, BID
     Route: 065
     Dates: start: 201704, end: 20171025
  9. TOCILIZUMAB. [Suspect]
     Active Substance: TOCILIZUMAB
     Indication: RHEUMATOID ARTHRITIS
     Dosage: 162 MG, BID
     Route: 065
     Dates: start: 201704, end: 20171025
  10. TOCILIZUMAB. [Suspect]
     Active Substance: TOCILIZUMAB
     Indication: RHEUMATOID ARTHRITIS
     Dosage: 162 MG, UNK, EVERY 12 DAYS
     Route: 065
     Dates: start: 20180414
  11. TOCILIZUMAB. [Suspect]
     Active Substance: TOCILIZUMAB
     Indication: MYALGIA
     Dosage: 162 MG, UNK, EVERY 12 DAYS
     Route: 065
     Dates: start: 201404
  12. TOCILIZUMAB. [Suspect]
     Active Substance: TOCILIZUMAB
     Indication: MYALGIA
     Dosage: 162 MG, UNK, EVERY 12 DAYS
     Route: 065
     Dates: start: 201506
  13. TOCILIZUMAB. [Suspect]
     Active Substance: TOCILIZUMAB
     Indication: RHEUMATOID ARTHRITIS
     Dosage: 162 MG, BID
     Route: 065
     Dates: start: 20180131
  14. TOCILIZUMAB. [Suspect]
     Active Substance: TOCILIZUMAB
     Indication: MYALGIA
     Dosage: 162 MG, UNK, EVERY 12 DAYS
     Route: 065
     Dates: start: 20180414
  15. TOCILIZUMAB. [Suspect]
     Active Substance: TOCILIZUMAB
     Indication: VASCULITIS
     Dosage: 162 MG, UNK, EVERY 12 DAYS
     Route: 065
     Dates: start: 20150706, end: 20171025
  16. TOCILIZUMAB. [Suspect]
     Active Substance: TOCILIZUMAB
     Indication: VASCULITIS
     Dosage: 162 MG, BID
     Route: 065
     Dates: start: 20180131
  17. PROLIA [Suspect]
     Active Substance: DENOSUMAB
     Indication: OSTEOPOROSIS
     Dosage: 60 MG, QMO
     Route: 065
  18. ESCITALOPRAM [Concomitant]
     Active Substance: ESCITALOPRAM OXALATE
     Dosage: 10 DROPS
     Route: 065
  19. TOCILIZUMAB. [Suspect]
     Active Substance: TOCILIZUMAB
     Indication: RHEUMATOID ARTHRITIS
     Dosage: 162 MG, UNK, EVERY 12 DAYS
     Route: 065
     Dates: start: 201506
  20. TOCILIZUMAB. [Suspect]
     Active Substance: TOCILIZUMAB
     Indication: VASCULITIS
     Dosage: 162 MG, UNK, EVERY 12 DAYS
     Route: 065
     Dates: start: 201506
  21. COLECALCIFEROL [Suspect]
     Active Substance: CHOLECALCIFEROL
     Indication: OSTEOPOROSIS
     Dosage: 1000 IU
     Route: 048
     Dates: start: 201204
  22. PANTOPRAZOLE [Concomitant]
     Active Substance: PANTOPRAZOLE
  23. LISIHEXAL [Concomitant]
     Active Substance: LISINOPRIL
     Dosage: 20.0MG UNKNOWN
     Route: 065
  24. TOCILIZUMAB. [Suspect]
     Active Substance: TOCILIZUMAB
     Indication: MYALGIA
     Dosage: 162 MG, UNK, EVERY 12 DAYS
     Route: 065
     Dates: start: 20150706, end: 20171025
  25. QUETIAPINE FUMARATE. [Suspect]
     Active Substance: QUETIAPINE FUMARATE
     Indication: PRODUCT USED FOR UNKNOWN INDICATION
     Route: 048
  26. TOCILIZUMAB. [Suspect]
     Active Substance: TOCILIZUMAB
     Indication: VASCULITIS
     Dosage: 162 MG, UNK, EVERY 12 DAYS
     Route: 065
     Dates: start: 201404
  27. TOCILIZUMAB. [Suspect]
     Active Substance: TOCILIZUMAB
     Indication: RHEUMATOID ARTHRITIS
     Dosage: 162 MG, UNK, EVERY 12 DAYS
     Route: 065
     Dates: start: 20150706, end: 20171025
  28. TOCILIZUMAB. [Suspect]
     Active Substance: TOCILIZUMAB
     Indication: MYALGIA
     Dosage: 162 MG, BID
     Route: 065
     Dates: start: 20180131
  29. TOCILIZUMAB. [Suspect]
     Active Substance: TOCILIZUMAB
     Indication: VASCULITIS
     Dosage: 162 MG, UNK, EVERY 12 DAYS
     Route: 065
     Dates: start: 20180414
  30. CORTISONE ACETATE. [Concomitant]
     Active Substance: CORTISONE ACETATE

REACTIONS (21)
  - Rash erythematous [Unknown]
  - Platelet count decreased [Unknown]
  - Product use in unapproved indication [Unknown]
  - Sleep disorder [Unknown]
  - Erysipelas [Recovering/Resolving]
  - Dysuria [Unknown]
  - Suture rupture [Recovered/Resolved]
  - Depression [Not Recovered/Not Resolved]
  - Venous thrombosis limb [Not Recovered/Not Resolved]
  - Facial nerve disorder [Recovered/Resolved]
  - Lymphoedema [Recovered/Resolved]
  - Autoimmune disorder [Unknown]
  - Sepsis [Recovering/Resolving]
  - Hyperaesthesia [Unknown]
  - Lymphocele [Recovered/Resolved]
  - Fall [Unknown]
  - Inappropriate schedule of drug administration [Unknown]
  - Impaired healing [Recovered/Resolved]
  - Prostate cancer [Not Recovered/Not Resolved]
  - Leukopenia [Not Recovered/Not Resolved]
  - Off label use [Unknown]

NARRATIVE: CASE EVENT DATE: 201407
